FAERS Safety Report 9485648 (Version 3)
Quarter: 2013Q4

REPORT INFORMATION
  Report Type: Spontaneous
  Country: JP (occurrence: JP)
  Receive Date: 20130829
  Receipt Date: 20131003
  Transmission Date: 20140711
  Serious: Yes (Death)
  Sender: FDA-Public Use
  Company Number: JP-BRISTOL-MYERS SQUIBB COMPANY-19215250

PATIENT
  Age: 86 Year
  Sex: Female
  Weight: 53 kg

DRUGS (9)
  1. ELIQUIS [Suspect]
     Indication: PROPHYLAXIS
     Dosage: FOR:ELIQUIS TAB 2.5 MG
     Route: 048
     Dates: start: 20130801, end: 20130813
  2. FUROSEMIDE [Concomitant]
     Dosage: TABS
     Route: 048
     Dates: start: 20091130, end: 20130813
  3. BLOPRESS [Concomitant]
     Dosage: TABS
     Route: 048
     Dates: start: 20091130, end: 20130813
  4. HALFDIGOXIN [Concomitant]
     Route: 048
     Dates: start: 20091130, end: 20130813
  5. MAGNESIUM OXIDE [Concomitant]
     Route: 048
     Dates: start: 20091130, end: 20130813
  6. BIOFERMIN [Concomitant]
     Route: 048
     Dates: start: 20091130, end: 20130813
  7. NITRODERM [Concomitant]
     Route: 062
     Dates: start: 20091130, end: 20130813
  8. ATORVASTATIN CALCIUM [Concomitant]
     Dosage: 07AUG13
     Route: 048
     Dates: start: 20091130, end: 20130813
  9. FAMOTIDINE TABS [Concomitant]
     Dosage: FAMOTIDINE D

REACTIONS (1)
  - Shock [Fatal]
